FAERS Safety Report 5215079-7 (Version None)
Quarter: 2007Q1

REPORT INFORMATION
  Report Type: 
  Country: None (occurrence: None)
  Receive Date: 20070122
  Receipt Date: 20070110
  Transmission Date: 20070707
  Serious: Yes (Congenital Anomaly, Other)
  Sender: FDA-Public Use
  Company Number: JP-PFIZER INC-2006154440

PATIENT
  Sex: Male
  Weight: 2.37 kg

DRUGS (4)
  1. SULFASALAZINE [Suspect]
  2. PREDNISOLONE [Suspect]
     Indication: COLITIS ULCERATIVE
     Route: 048
  3. MESALAZINE [Suspect]
     Indication: COLITIS ULCERATIVE
     Route: 048
  4. STERONEMA [Suspect]
     Indication: COLITIS ULCERATIVE
     Route: 054
     Dates: start: 20060111, end: 20060802

REACTIONS (4)
  - CEREBRAL ATROPHY CONGENITAL [None]
  - DRUG EXPOSURE DURING PREGNANCY [None]
  - NEONATAL ASPHYXIA [None]
  - SKIN DISORDER [None]
